FAERS Safety Report 6578477-5 (Version None)
Quarter: 2010Q1

REPORT INFORMATION
  Report Type: 
  Country: None (occurrence: None)
  Receive Date: 20100211
  Receipt Date: 20100201
  Transmission Date: 20100710
  Serious: Yes (Other)
  Sender: FDA-Public Use
  Company Number: PHEH2007US10963

PATIENT
  Sex: Male

DRUGS (1)
  1. ZOMETA [Suspect]

REACTIONS (15)
  - ANHEDONIA [None]
  - ANXIETY [None]
  - BONE DENSITY DECREASED [None]
  - BONE DISORDER [None]
  - DEFORMITY [None]
  - DERMATITIS CONTACT [None]
  - DISABILITY [None]
  - EMOTIONAL DISTRESS [None]
  - GASTRITIS [None]
  - INFECTION [None]
  - OSTEONECROSIS [None]
  - OVERDOSE [None]
  - PAIN [None]
  - SQUAMOUS CELL CARCINOMA [None]
  - STOMATITIS [None]
